FAERS Safety Report 7371388-7 (Version None)
Quarter: 2011Q1

REPORT INFORMATION
  Report Type: 
  Country: None (occurrence: None)
  Receive Date: 20110322
  Receipt Date: 20110322
  Transmission Date: 20110831
  Serious: No
  Sender: FDA-Public Use
  Company Number: None

PATIENT
  Age: 74 Year
  Sex: Male
  Weight: 58.514 kg

DRUGS (2)
  1. FLOMAX [Suspect]
     Indication: BENIGN PROSTATIC HYPERPLASIA
     Dosage: 1QD QD PO
     Route: 048
     Dates: start: 20101210, end: 20110307
  2. TAMSULOSIN HCL [Suspect]

REACTIONS (1)
  - DIARRHOEA [None]
